FAERS Safety Report 6470252-5 (Version None)
Quarter: 2009Q4

REPORT INFORMATION
  Report Type: 
  Country: None (occurrence: None)
  Receive Date: 20091203
  Receipt Date: 20091124
  Transmission Date: 20100525
  Serious: Yes (Other)
  Sender: FDA-Public Use
  Company Number: US-JNJFOC-20091107318

PATIENT
  Sex: Female
  Weight: 102.06 kg

DRUGS (10)
  1. REMICADE [Suspect]
     Indication: RHEUMATOID ARTHRITIS
     Route: 042
     Dates: start: 20050101, end: 20090826
  2. COREG [Concomitant]
     Indication: HYPERTENSION
  3. ARAVA [Concomitant]
  4. ACETYLSALICYLIC  ACID [Concomitant]
  5. COUMADIN [Concomitant]
  6. FEXOFENADINE [Concomitant]
  7. LIPITOR [Concomitant]
  8. LISINOPRIL [Concomitant]
  9. SPIROLACTONE [Concomitant]
  10. SYNTHROID [Concomitant]

REACTIONS (1)
  - KNEE ARTHROPLASTY [None]
